FAERS Safety Report 8187816-3 (Version None)
Quarter: 2012Q1

REPORT INFORMATION
  Report Type: 
  Country: None (occurrence: None)
  Receive Date: 20120306
  Receipt Date: 20101014
  Transmission Date: 20120608
  Serious: Yes (Hospitalization)
  Sender: FDA-Public Use
  Company Number: US-ROCHE-731552

PATIENT
  Sex: Female
  Weight: 79.4 kg

DRUGS (9)
  1. VEMURAFENIB [Suspect]
     Indication: METASTATIC MALIGNANT MELANOMA
     Dosage: 4 TABLETS IN MORNING AND 4 TABLETS IN EVENING (TOTAL DAILY DOSE OF 1920 MG [960 MG B.I.D.]
     Route: 048
     Dates: start: 20100909, end: 20101001
  2. ATENOLOL AND CHLORTHALIDONE [Concomitant]
     Dosage: TOTAL DAILY DOSE REPORTED : 50 / 25
  3. PHENERGAN [Concomitant]
  4. LISINOPRIL [Concomitant]
  5. CALTRATE 600 [Concomitant]
     Dosage: DRUG REPORTED AS: CALTRATE 600 PLUS.
  6. ZOFRAN [Concomitant]
  7. CENTRUM [Concomitant]
  8. LORTAB [Concomitant]
     Dosage: TOTAL DAILY DOSE: 5/ 500
  9. VEMURAFENIB [Suspect]
     Dosage: 3 TABLETS BID.
     Route: 048

REACTIONS (4)
  - VOMITING [None]
  - DEHYDRATION [None]
  - ACUTE PRERENAL FAILURE [None]
  - NAUSEA [None]
